FAERS Safety Report 24167299 (Version 1)
Quarter: 2024Q3

REPORT INFORMATION
  Report Type: Spontaneous
  Country: FR (occurrence: FR)
  Receive Date: 20240802
  Receipt Date: 20240802
  Transmission Date: 20241017
  Serious: Yes (Other)
  Sender: DR REDDYS
  Company Number: None

PATIENT
  Age: 72 Year
  Sex: Male
  Weight: 72 kg

DRUGS (5)
  1. AZACITIDINE [Suspect]
     Active Substance: AZACITIDINE
     Indication: Myelodysplastic syndrome
     Dosage: 75 MG/M? IN 2 INJECTIONS ON D1, D2, D3, D6, D7, D8 AND D9 - 28-DAY CYCLE
     Route: 058
     Dates: start: 20240320, end: 20240328
  2. AZACITIDINE [Suspect]
     Active Substance: AZACITIDINE
     Dosage: 75 MG/M? IN 2 INJECTIONS ON D1, D2, D3, D6, D7, D8 AND D9 - 28-DAY CYCLE
     Route: 058
     Dates: start: 20240715, end: 20240723
  3. AZACITIDINE [Suspect]
     Active Substance: AZACITIDINE
     Dosage: 75 MG/M? IN 2 INJECTIONS ON D1, D2, D3, D6, D7, D8 AND D9 - 28-DAY CYCLE
     Route: 058
     Dates: start: 20240422, end: 20240430
  4. AZACITIDINE [Suspect]
     Active Substance: AZACITIDINE
     Dosage: 75 MG/M? IN 2 INJECTIONS ON D1, D2, D3, D6, D7, D8 AND D9 - 28-DAY CYCLE
     Route: 058
     Dates: start: 20240617, end: 20240625
  5. AZACITIDINE [Suspect]
     Active Substance: AZACITIDINE
     Dosage: 75 MG/M? IN 2 INJECTIONS ON D1, D2, D3, D6, D7, D8 AND D9 - 28-DAY CYCLE
     Route: 058
     Dates: start: 20240521, end: 20240529

REACTIONS (2)
  - Peripheral sensorimotor neuropathy [Not Recovered/Not Resolved]
  - Radiculopathy [Not Recovered/Not Resolved]

NARRATIVE: CASE EVENT DATE: 20240401
